FAERS Safety Report 12681813 (Version 2)
Quarter: 2016Q3

REPORT INFORMATION
  Report Type: Report from Study
  Country: CZ (occurrence: CZ)
  Receive Date: 20160824
  Receipt Date: 20160909
  Transmission Date: 20161109
  Serious: Yes (Hospitalization)
  Sender: FDA-Public Use
  Company Number: CZ-SA-2016SA151834

PATIENT
  Age: 67 Year
  Sex: Female
  Weight: 52 kg

DRUGS (3)
  1. ETANERCEPT [Suspect]
     Active Substance: ETANERCEPT
     Indication: RHEUMATOID ARTHRITIS
     Route: 058
     Dates: start: 20130417, end: 20131007
  2. METHOTREXATE. [Suspect]
     Active Substance: METHOTREXATE
     Indication: RHEUMATOID ARTHRITIS
     Route: 048
     Dates: start: 20130420, end: 20131007
  3. LEFLUNOMIDE. [Suspect]
     Active Substance: LEFLUNOMIDE
     Indication: RHEUMATOID ARTHRITIS
     Route: 048
     Dates: start: 2009, end: 20131001

REACTIONS (7)
  - Intervertebral discitis [Recovered/Resolved]
  - General physical health deterioration [Recovered/Resolved]
  - C-reactive protein increased [Recovered/Resolved]
  - Salmonella sepsis [Recovered/Resolved]
  - Back pain [Recovered/Resolved]
  - Salmonella test positive [Recovered/Resolved]
  - Extradural abscess [Recovered/Resolved]

NARRATIVE: CASE EVENT DATE: 20131006
